FAERS Safety Report 6036169-5 (Version None)
Quarter: 2009Q1

REPORT INFORMATION
  Report Type: 
  Country: None (occurrence: None)
  Receive Date: 20090113
  Receipt Date: 20090105
  Transmission Date: 20090719
  Serious: Yes (Death)
  Sender: FDA-Public Use
  Company Number: GB-B.I. PHARMACEUTICALS,INC./RIDGEFIELD-2008-UK-01855UK

PATIENT
  Sex: Male
  Weight: 53.7 kg

DRUGS (5)
  1. TIPRANAVIR+RITONAVIR CO-ADMIN (EU/1/05/315/001) [Suspect]
     Indication: HIV INFECTION
     Dosage: 1000MG
     Route: 051
     Dates: start: 20061114, end: 20070106
  2. RITONAVIR [Concomitant]
     Indication: HIV TEST POSITIVE
     Dosage: 400MG
     Route: 051
     Dates: start: 20061114, end: 20070106
  3. LAMIVUDINE [Concomitant]
     Indication: HIV TEST POSITIVE
     Dosage: 300MG
     Route: 051
     Dates: start: 20061114, end: 20070106
  4. LAMIVUDINE [Concomitant]
  5. STAVUDINE [Concomitant]
     Indication: HIV TEST POSITIVE
     Dosage: 60MG
     Route: 051
     Dates: start: 20061114, end: 20070106

REACTIONS (2)
  - GASTRIC HAEMORRHAGE [None]
  - MYOCARDIAL ISCHAEMIA [None]
